FAERS Safety Report 24851807 (Version 4)
Quarter: 2025Q1

REPORT INFORMATION
  Report Type: Spontaneous
  Country: US (occurrence: US)
  Receive Date: 20250116
  Receipt Date: 20250220
  Transmission Date: 20250408
  Serious: Yes (Other)
  Sender: AMGEN
  Company Number: US-AMGEN-USASP2025005939

PATIENT
  Age: 68 Year
  Sex: Female

DRUGS (3)
  1. REPATHA [Suspect]
     Active Substance: EVOLOCUMAB
     Indication: Product used for unknown indication
     Dosage: 420 MILLIGRAM, QMO
     Route: 058
  2. REPATHA [Suspect]
     Active Substance: EVOLOCUMAB
     Dosage: 420 MILLIGRAM, QMO
     Route: 058
  3. OZEMPIC [Concomitant]
     Active Substance: SEMAGLUTIDE

REACTIONS (10)
  - Renal failure [Unknown]
  - Cardiac failure congestive [Unknown]
  - Illness [Unknown]
  - Vein disorder [Unknown]
  - Device difficult to use [Unknown]
  - Drug dose omission by device [Unknown]
  - Accidental exposure to product [Unknown]
  - Product administered at inappropriate site [Unknown]
  - Product preparation error [Unknown]
  - Blood cholesterol increased [Unknown]

NARRATIVE: CASE EVENT DATE: 20240101
